FAERS Safety Report 15183020 (Version 2)
Quarter: 2018Q3

REPORT INFORMATION
  Report Type: Spontaneous
  Country: US (occurrence: US)
  Receive Date: 20180723
  Receipt Date: 20180831
  Transmission Date: 20181010
  Serious: Yes (Hospitalization)
  Sender: FDA-Public Use
  Company Number: US-JNJFOC-20180720280

PATIENT
  Sex: Male
  Weight: 111.13 kg

DRUGS (1)
  1. RISPERDAL [Suspect]
     Active Substance: RISPERIDONE
     Indication: SCHIZOAFFECTIVE DISORDER
     Dosage: 2 TABLETS
     Route: 048
     Dates: start: 2003

REACTIONS (4)
  - Product label issue [Unknown]
  - Therapy cessation [Unknown]
  - Treatment noncompliance [Unknown]
  - Agitation [Not Recovered/Not Resolved]
